APPROVED DRUG PRODUCT: APHEXDA
Active Ingredient: MOTIXAFORTIDE ACETATE
Strength: EQ 62MG BASE/VIAL
Dosage Form/Route: POWDER;SUBCUTANEOUS
Application: N217159 | Product #001
Applicant: AYRMID PHARMA LTD
Approved: Sep 8, 2023 | RLD: Yes | RS: Yes | Type: RX

PATENTS:
Patent 12257285 | Expires: Dec 29, 2041
Patent 12268725 | Expires: Dec 29, 2041

EXCLUSIVITY:
Code: NCE | Date: Sep 8, 2028
Code: ODE-442 | Date: Sep 8, 2030